FAERS Safety Report 19373087 (Version 1)
Quarter: 2021Q2

REPORT INFORMATION
  Report Type: Spontaneous
  Country: IT (occurrence: IT)
  Receive Date: 20210604
  Receipt Date: 20210604
  Transmission Date: 20210717
  Serious: Yes (Hospitalization, Other)
  Sender: FDA-Public Use
  Company Number: IT-CPL-002350

PATIENT
  Age: 45 Year
  Sex: Male

DRUGS (3)
  1. ROSUVASTATIN/ROSUVASTATIN CALCIUM [Suspect]
     Active Substance: ROSUVASTATIN CALCIUM
     Indication: TYPE IIA HYPERLIPIDAEMIA
  2. DIAMORPHINE [Suspect]
     Active Substance: DIAMORPHINE
  3. COCAINE [Suspect]
     Active Substance: COCAINE

REACTIONS (3)
  - Substance abuse [Unknown]
  - Acute kidney injury [Recovering/Resolving]
  - Rhabdomyolysis [Not Recovered/Not Resolved]
